FAERS Safety Report 17813249 (Version 1)
Quarter: 2020Q2

REPORT INFORMATION
  Report Type: Spontaneous
  Country: US (occurrence: US)
  Receive Date: 20200521
  Receipt Date: 20200521
  Transmission Date: 20200714
  Serious: No
  Sender: FDA-Public Use
  Company Number: US-ACTELION-A-US2020-205121

PATIENT
  Sex: Male

DRUGS (2)
  1. ZAVESCA [Suspect]
     Active Substance: MIGLUSTAT
     Indication: LIPID METABOLISM DISORDER
     Dosage: 100 MG, BID
     Route: 048
     Dates: start: 20191210
  2. MULTIVITAMINS [VITAMINS NOS] [Concomitant]
     Active Substance: VITAMINS
     Dosage: 1 TAB, QD
     Dates: start: 20191205

REACTIONS (1)
  - Dermatitis diaper [Unknown]
